FAERS Safety Report 8261404-2 (Version None)
Quarter: 2012Q2

REPORT INFORMATION
  Report Type: 
  Country: None (occurrence: None)
  Receive Date: 20120405
  Receipt Date: 20120328
  Transmission Date: 20120825
  Serious: Yes (Hospitalization)
  Sender: FDA-Public Use
  Company Number: US-BAYER-2011-051705

PATIENT
  Age: 20 Year
  Sex: Female
  Weight: 70.295 kg

DRUGS (16)
  1. YAZ [Suspect]
     Indication: PREMENSTRUAL SYNDROME
     Dosage: UNK
     Dates: start: 20090201, end: 20090801
  2. LORAZEPAM [Concomitant]
     Dosage: 0.5 MG, UNK
     Dates: start: 20090520
  3. LEXAPRO [Concomitant]
     Dosage: UNK
     Dates: start: 20090609
  4. KETOROLAC TROMETHAMINE [Concomitant]
     Dosage: 10 MG, UNK
     Dates: start: 20090519
  5. METHYLPREDNISOLONE [Concomitant]
     Dosage: 4 MG, UNK
     Dates: start: 20090519
  6. AMOXICILLIN AND CLAVULANATE POTASSIUM [Concomitant]
     Dosage: 875/125 MG
     Dates: start: 20090529
  7. ACIPHEX [Concomitant]
  8. TRAMADOL HCL [Concomitant]
  9. MEPERIDINE HCL [Concomitant]
     Dosage: 50 MG, UNK
     Dates: start: 20090729
  10. AVIANE-28 [Concomitant]
     Dosage: UNK
     Dates: start: 20090716
  11. LUTERA [Concomitant]
     Dosage: UNK
     Dates: start: 20090101
  12. PROMETHAZINE [Concomitant]
     Dosage: 25 MG, UNK
     Dates: start: 20090729
  13. PREDNISONE TAB [Concomitant]
     Dosage: 20 MG, UNK
     Dates: start: 20090513
  14. HYDROCODONE BITARTRATE AND ACETAMINOPHEN [Concomitant]
     Dosage: 7.25 MG/500MG
     Dates: start: 20090513
  15. CARISOPRODOL [Concomitant]
     Dosage: 350 MG, UNK
     Dates: start: 20090309, end: 20090807
  16. CEPHALEXIN [Concomitant]
     Dosage: 500 MG, UNK
     Dates: start: 20090630

REACTIONS (6)
  - INJURY [None]
  - GALLBLADDER DISORDER [None]
  - EMOTIONAL DISORDER [None]
  - CHOLECYSTITIS [None]
  - PAIN [None]
  - BILIARY DYSKINESIA [None]
